FAERS Safety Report 20091878 (Version 1)
Quarter: 2021Q4

REPORT INFORMATION
  Report Type: Other
  Country: US (occurrence: None)
  Receive Date: 20211119
  Receipt Date: 20211119
  Transmission Date: 20220303
  Serious: Yes (Hospitalization)
  Sender: FDA-Public Use
  Company Number: US-Merck Healthcare KGaA-9279433

PATIENT
  Age: 66 Year
  Sex: Female

DRUGS (3)
  1. METFORMIN HYDROCHLORIDE [Suspect]
     Active Substance: METFORMIN HYDROCHLORIDE
     Indication: Type 2 diabetes mellitus
  2. EMPAGLIFLOZIN [Suspect]
     Active Substance: EMPAGLIFLOZIN
     Indication: Type 2 diabetes mellitus
  3. CELECOXIB [Concomitant]
     Active Substance: CELECOXIB
     Indication: Intervertebral disc operation

REACTIONS (3)
  - Acute kidney injury [Recovering/Resolving]
  - Euglycaemic diabetic ketoacidosis [Unknown]
  - Lactic acidosis [Recovering/Resolving]
